FAERS Safety Report 8060938-3 (Version None)
Quarter: 2012Q1

REPORT INFORMATION
  Report Type: 
  Country: None (occurrence: None)
  Receive Date: 20120120
  Receipt Date: 20120113
  Transmission Date: 20120608
  Serious: Yes (Other)
  Sender: FDA-Public Use
  Company Number: FR-ASTRAZENECA-2012SE03310

PATIENT
  Age: 40 Year
  Sex: Female

DRUGS (3)
  1. QUETIAPINE FUMARATE [Suspect]
     Indication: BIPOLAR I DISORDER
     Route: 048
     Dates: start: 20120101, end: 20120101
  2. QUETIAPINE FUMARATE [Suspect]
     Route: 048
     Dates: start: 20120101
  3. QUETIAPINE FUMARATE [Suspect]
     Route: 048
     Dates: start: 20120101, end: 20120101

REACTIONS (2)
  - FALL [None]
  - DIZZINESS POSTURAL [None]
